FAERS Safety Report 14284042 (Version 1)
Quarter: 2017Q4

REPORT INFORMATION
  Report Type: Spontaneous
  Country: US (occurrence: US)
  Receive Date: 20171214
  Receipt Date: 20171214
  Transmission Date: 20180321
  Serious: Yes (Other)
  Sender: FDA-Public Use
  Company Number: US-STRIDES ARCOLAB LIMITED-2017SP013986

PATIENT

DRUGS (1)
  1. AMANTADINE HYDROCHLORIDE. [Suspect]
     Active Substance: AMANTADINE HYDROCHLORIDE
     Indication: PRODUCT USED FOR UNKNOWN INDICATION
     Dosage: 100 MG, TWICE A DAY
     Route: 048

REACTIONS (4)
  - Corneal oedema [Recovered/Resolved]
  - Visual field defect [Recovered/Resolved]
  - Toxicity to various agents [Unknown]
  - Vision blurred [Recovered/Resolved]
